FAERS Safety Report 8479639 (Version 2)
Quarter: 2012Q4

REPORT INFORMATION
  Report Type: 
  Country: US (occurrence: US)
  Receive Date: 20120328
  Receipt Date: 20120913
  Transmission Date: 20130627
  Serious: Yes (Hospitalization)
  Sender: FDA-Public Use
  Company Number: US-BAYER-2012-029777

PATIENT
  Age: 48 Year
  Sex: Female
  Weight: 73 kg

DRUGS (10)
  1. YAZ [Suspect]
     Indication: ACNE
     Dosage: UNK
     Dates: start: 200912, end: 20100309
  2. YAZ [Suspect]
     Indication: CONTRACEPTION
  3. MEDROXYPROGESTERONE [Concomitant]
     Indication: MENORRHAGIA
  4. ATENOLOL [Concomitant]
     Indication: HYPERTENSION
     Dosage: 50 mg, UNK
     Dates: start: 1997
  5. GEMFIBROZIL [Concomitant]
     Indication: HYPERTENSION
     Dosage: 600 mg, UNK
     Dates: start: 1997
  6. CANNABIS SATIVA SUBSP. INDICA TOP [Concomitant]
     Indication: BACK PAIN
     Dosage: Used within 20 days before the onset of adverse event.
  7. MULTIVITAMIN [Concomitant]
     Dosage: Used within 20 days before the onset of adverse event.
  8. NYSTATIN / TRIAMCINOLONE [Concomitant]
     Dosage: UNK
     Route: 061
     Dates: start: 20100110
  9. BENAZEPRIL HYDROCHLORIDE [Concomitant]
     Dosage: 20 mg, UNK
     Route: 048
     Dates: start: 20100119
  10. IRON [Concomitant]
     Indication: IRON DEFICIENCY

REACTIONS (4)
  - Deep vein thrombosis [Recovering/Resolving]
  - Injury [None]
  - Pain [None]
  - Pain [None]
